FAERS Safety Report 9262582 (Version 2)
Quarter: 2013Q3

REPORT INFORMATION
  Report Type: Spontaneous
  Country: HU (occurrence: None)
  Receive Date: 20130426
  Receipt Date: 20130819
  Transmission Date: 20140515
  Serious: Yes (Death, Hospitalization, Other)
  Sender: FDA-Public Use
  Company Number: AUR-APL-2011-04928

PATIENT
  Age: 79 Year
  Sex: Female

DRUGS (5)
  1. RAMIPRIL [Suspect]
     Indication: PRODUCT USED FOR UNKNOWN INDICATION
     Route: 048
  2. POTASSIUM [Suspect]
     Indication: PRODUCT USED FOR UNKNOWN INDICATION
  3. AMARYL (GLIMEPIRIDE) [Suspect]
     Indication: TYPE 2 DIABETES MELLITUS
     Dates: start: 20101116
  4. ADEXOR [Concomitant]
  5. IRBESARTAN [Concomitant]

REACTIONS (8)
  - Bradyarrhythmia [None]
  - Cardiomegaly [None]
  - Asthenia [None]
  - Hyperkalaemia [None]
  - Cardiac failure [None]
  - Cardiogenic shock [None]
  - Chest pain [None]
  - Pulmonary congestion [None]
